FAERS Safety Report 8812116 (Version 1)
Quarter: 2012Q4

REPORT INFORMATION
  Report Type: 
  Country: US (occurrence: US)
  Receive Date: 20120927
  Receipt Date: 20120927
  Transmission Date: 20130627
  Serious: No
  Sender: FDA-Public Use
  Company Number: US-ASTRAZENECA-2012SE71268

PATIENT
  Age: 59 Year
  Sex: Female

DRUGS (3)
  1. PULMICORT RESPULES [Suspect]
     Route: 055
  2. RHINOCORT [Concomitant]
  3. SYMBICORT [Concomitant]

REACTIONS (2)
  - Adverse event [Unknown]
  - Drug dose omission [Unknown]
